FAERS Safety Report 21746632 (Version 1)
Quarter: 2022Q4

REPORT INFORMATION
  Report Type: Spontaneous
  Country: US (occurrence: US)
  Receive Date: 20221219
  Receipt Date: 20221219
  Transmission Date: 20230113
  Serious: No
  Sender: FDA-Public Use
  Company Number: US-GSKCCFUS-Case-01582152_AE-89392

PATIENT
  Sex: Female

DRUGS (1)
  1. ADVAIR HFA [Suspect]
     Active Substance: FLUTICASONE PROPIONATE\SALMETEROL XINAFOATE
     Indication: Product used for unknown indication
     Dosage: 2 PUFF(S), BID

REACTIONS (6)
  - Dyspnoea [Unknown]
  - Wheezing [Unknown]
  - Chest discomfort [Unknown]
  - Condition aggravated [Unknown]
  - Wrong technique in device usage process [Unknown]
  - Product complaint [Unknown]
